FAERS Safety Report 9266481 (Version 1)
Quarter: 2013Q2

REPORT INFORMATION
  Report Type: Spontaneous
  Country: BE (occurrence: BE)
  Receive Date: 20130502
  Receipt Date: 20130502
  Transmission Date: 20140414
  Serious: Yes (Death, Hospitalization)
  Sender: FDA-Public Use
  Company Number: BE-JNJFOC-20130415342

PATIENT
  Sex: Female

DRUGS (5)
  1. XARELTO [Suspect]
     Indication: ATRIAL FIBRILLATION
     Route: 048
  2. XARELTO [Suspect]
     Indication: CEREBROVASCULAR ACCIDENT PROPHYLAXIS
     Route: 048
  3. AMLOR [Concomitant]
     Route: 065
  4. LASIX [Concomitant]
     Route: 065
  5. ALDACTONE [Concomitant]
     Route: 065

REACTIONS (2)
  - Thrombotic stroke [Fatal]
  - Drug ineffective [Unknown]
